FAERS Safety Report 4623086-8 (Version None)
Quarter: 2005Q1

REPORT INFORMATION
  Report Type: 
  Country: None (occurrence: None)
  Receive Date: 20050328
  Receipt Date: 20050328
  Transmission Date: 20050727
  Serious: No
  Sender: FDA-Public Use
  Company Number: None

PATIENT
  Age: 50 Year
  Sex: Female
  Weight: 104.3273 kg

DRUGS (2)
  1. EFFEXOR XR [Suspect]
     Indication: DEPRESSION
     Dosage: 75MG   QD   ORAL
     Route: 048
     Dates: start: 20040301, end: 20050301
  2. EFFEXOR [Suspect]
     Indication: DEPRESSION
     Dosage: 25MG   QD   ORAL
     Route: 048
     Dates: start: 20050301, end: 20050315

REACTIONS (2)
  - DRUG WITHDRAWAL SYNDROME [None]
  - NERVOUS SYSTEM DISORDER [None]
